FAERS Safety Report 23728133 (Version 1)
Quarter: 2024Q2

REPORT INFORMATION
  Report Type: Spontaneous
  Country: CH (occurrence: CH)
  Receive Date: 20240410
  Receipt Date: 20240410
  Transmission Date: 20240716
  Serious: Yes (Other)
  Sender: FDA-Public Use
  Company Number: CH-009507513-2404CHE005515

PATIENT

DRUGS (13)
  1. PEMBROLIZUMAB [Suspect]
     Active Substance: PEMBROLIZUMAB
     Indication: Lung neoplasm malignant
     Dosage: 200 MILLIGRAM, Q3W
     Dates: start: 20220506, end: 20220506
  2. PEMBROLIZUMAB [Suspect]
     Active Substance: PEMBROLIZUMAB
     Dosage: 200 MILLIGRAM, Q3W
     Dates: start: 20220616, end: 20220616
  3. PEMBROLIZUMAB [Suspect]
     Active Substance: PEMBROLIZUMAB
     Dosage: 200 MILLIGRAM, Q3W
     Dates: start: 2022, end: 2023
  4. PEMBROLIZUMAB [Suspect]
     Active Substance: PEMBROLIZUMAB
     Dosage: 200 MILLIGRAM, Q3W
     Dates: start: 20230317, end: 20230317
  5. PEMBROLIZUMAB [Suspect]
     Active Substance: PEMBROLIZUMAB
     Dosage: 200 MILLIGRAM, Q3W
     Dates: start: 2023, end: 2023
  6. PEMBROLIZUMAB [Suspect]
     Active Substance: PEMBROLIZUMAB
     Dosage: 200 MILLIGRAM, Q3W
     Dates: start: 20231124
  7. CARBOPLATIN [Suspect]
     Active Substance: CARBOPLATIN
     Indication: Lung neoplasm malignant
     Dosage: UNK
     Dates: start: 20220506, end: 20220506
  8. CARBOPLATIN [Suspect]
     Active Substance: CARBOPLATIN
     Dosage: UNK
     Dates: start: 20220616, end: 20220616
  9. CARBOPLATIN [Suspect]
     Active Substance: CARBOPLATIN
     Dosage: UNK
     Dates: start: 2022
  10. PEMETREXED [Suspect]
     Active Substance: PEMETREXED
     Indication: Lung neoplasm malignant
     Dosage: Q3W
     Dates: start: 20220506, end: 20220506
  11. PEMETREXED [Suspect]
     Active Substance: PEMETREXED
     Dosage: Q3W
     Dates: start: 20220616, end: 20220616
  12. PEMETREXED [Suspect]
     Active Substance: PEMETREXED
     Dosage: Q3W
     Dates: start: 2022, end: 2023
  13. PEMETREXED [Suspect]
     Active Substance: PEMETREXED
     Dosage: Q3W
     Dates: start: 20230330, end: 2023

REACTIONS (12)
  - Malignant neoplasm progression [Unknown]
  - Pulmonary fibrosis [Unknown]
  - Pathological fracture [Recovering/Resolving]
  - Pulmonary fibrosis [Unknown]
  - Subclavian vein thrombosis [Unknown]
  - Brachiocephalic vein thrombosis [Unknown]
  - Vena cava thrombosis [Unknown]
  - Inappropriate schedule of product administration [Unknown]
  - Computerised tomogram liver abnormal [Unknown]
  - Respiratory disorder [Unknown]
  - Lung consolidation [Unknown]
  - Thymus disorder [Unknown]

NARRATIVE: CASE EVENT DATE: 20220616
